FAERS Safety Report 4321994-9 (Version None)
Quarter: 2004Q1

REPORT INFORMATION
  Report Type: 
  Country: None (occurrence: None)
  Receive Date: 20040323
  Receipt Date: 20040308
  Transmission Date: 20041129
  Serious: Yes (Other)
  Sender: FDA-Public Use
  Company Number: PHBS2004BE03255

PATIENT
  Age: 70 Year
  Sex: Female

DRUGS (9)
  1. NEORAL [Suspect]
     Indication: LIVER TRANSPLANT
     Dosage: 60 MG/D
     Dates: start: 19910101
  2. SEVELAMER [Suspect]
     Indication: HYPERPHOSPHATAEMIA
     Dosage: 806 MG, TID
  3. PROPRANOLOL [Concomitant]
     Dosage: 40 MG/D
  4. DOXEPIN HCL [Concomitant]
     Dosage: 25 MG/D
  5. CLONAZEPAM [Concomitant]
     Dosage: 0.25 MG/D
  6. ZOLPIDEM [Concomitant]
     Dosage: 10 MG/D
  7. OMEPRAZOLE [Concomitant]
     Dosage: 10 MG/D
  8. INSULIN [Concomitant]
  9. CALCIUM CARBONATE [Concomitant]

REACTIONS (3)
  - DRUG INTERACTION [None]
  - DRUG LEVEL DECREASED [None]
  - GASTROINTESTINAL DISORDER [None]
